FAERS Safety Report 10077764 (Version 2)
Quarter: 2014Q2

REPORT INFORMATION
  Report Type: Spontaneous
  Country: US (occurrence: US)
  Receive Date: 20140414
  Receipt Date: 20140414
  Transmission Date: 20141212
  Serious: Yes (Death)
  Sender: FDA-Public Use
  Company Number: US-TMC-CABO-14003991

PATIENT
  Age: 66 Year
  Sex: Female
  Weight: 56 kg

DRUGS (3)
  1. COMETRIQ [Suspect]
     Indication: THYROID CANCER
     Dosage: 100 MG, QD
     Route: 048
     Dates: start: 20140129, end: 20140204
  2. COMETRIQ [Suspect]
     Dosage: 80 MG, QD
     Route: 048
     Dates: start: 20140205, end: 2014
  3. TYLENOL [Concomitant]

REACTIONS (5)
  - Death [Fatal]
  - Diarrhoea [Not Recovered/Not Resolved]
  - Asthenia [Unknown]
  - Decreased appetite [Unknown]
  - Headache [Recovered/Resolved]
